FAERS Safety Report 10082901 (Version 1)
Quarter: 2014Q2

REPORT INFORMATION
  Report Type: Spontaneous
  Country: US (occurrence: US)
  Receive Date: 20140417
  Receipt Date: 20140417
  Transmission Date: 20141212
  Serious: Yes (Death)
  Sender: FDA-Public Use
  Company Number: US-ROCHE-1385358

PATIENT
  Age: 62 Year
  Sex: Female
  Weight: 58.11 kg

DRUGS (1)
  1. XELODA [Suspect]
     Indication: LUNG NEOPLASM MALIGNANT
     Dosage: 14 DAY THEN 7 DAY BREAK REPEAT CYCLE
     Route: 048
     Dates: start: 20140211, end: 20140331

REACTIONS (1)
  - Death [Fatal]
